FAERS Safety Report 12619940 (Version 1)
Quarter: 2016Q3

REPORT INFORMATION
  Report Type: Spontaneous
  Country: NL (occurrence: NL)
  Receive Date: 20160803
  Receipt Date: 20160803
  Transmission Date: 20161109
  Serious: Yes (Other)
  Sender: FDA-Public Use
  Company Number: PHHY2016NL099335

PATIENT
  Sex: Male

DRUGS (1)
  1. VALACICLOVIR SANDOZ [Suspect]
     Active Substance: VALACYCLOVIR HYDROCHLORIDE
     Indication: HERPES ZOSTER
     Dosage: 500 MG, TID2SDO
     Route: 065
     Dates: start: 20160711, end: 20160718

REACTIONS (2)
  - Condition aggravated [Unknown]
  - Drug ineffective [Unknown]
